FAERS Safety Report 4515483-6 (Version None)
Quarter: 2004Q4

REPORT INFORMATION
  Report Type: 
  Country: None (occurrence: None)
  Receive Date: 20041126
  Receipt Date: 20041111
  Transmission Date: 20050328
  Serious: No
  Sender: FDA-Public Use
  Company Number: 29678

PATIENT
  Age: 35 Year
  Sex: Male
  Weight: 79.3795 kg

DRUGS (3)
  1. VIGAMOX [Suspect]
     Dates: start: 20041005, end: 20041012
  2. CIROPTIC [Concomitant]
  3. FLAREX [Concomitant]

REACTIONS (3)
  - CORNEAL TRANSPLANT [None]
  - KERATITIS FUNGAL [None]
  - PHARMACEUTICAL PRODUCT COMPLAINT [None]
